FAERS Safety Report 5374200-0 (Version None)
Quarter: 2007Q2

REPORT INFORMATION
  Report Type: 
  Country: None (occurrence: None)
  Receive Date: 20070627
  Receipt Date: 20061023
  Transmission Date: 20071010
  Serious: Yes (Other)
  Sender: FDA-Public Use
  Company Number: 468533

PATIENT

DRUGS (1)
  1. XELODA [Suspect]
     Indication: BILE DUCT CANCER
     Dosage: 3000 MG DAILY ORAL
     Route: 048
     Dates: start: 20060410

REACTIONS (1)
  - PALMAR-PLANTAR ERYTHRODYSAESTHESIA SYNDROME [None]
